FAERS Safety Report 21927339 (Version 1)
Quarter: 2023Q1

REPORT INFORMATION
  Report Type: Spontaneous
  Country: GB (occurrence: GB)
  Receive Date: 20230130
  Receipt Date: 20230130
  Transmission Date: 20230417
  Serious: Yes (Hospitalization)
  Sender: FDA-Public Use
  Company Number: None

PATIENT
  Sex: Female

DRUGS (1)
  1. CABERGOLINE [Suspect]
     Active Substance: CABERGOLINE
     Dosage: 500 UG, 1X/DAY

REACTIONS (3)
  - Mania [Not Recovered/Not Resolved]
  - Delusion [Unknown]
  - Psychotic disorder [Unknown]
